FAERS Safety Report 25704767 (Version 1)
Quarter: 2025Q3

REPORT INFORMATION
  Report Type: Spontaneous
  Country: US (occurrence: US)
  Receive Date: 20250820
  Receipt Date: 20250820
  Transmission Date: 20251021
  Serious: No
  Sender: ALEXION PHARMACEUTICALS
  Company Number: US-AstraZeneca-CH-00912069AP

PATIENT
  Sex: Male

DRUGS (1)
  1. AIRSUPRA [Suspect]
     Active Substance: ALBUTEROL SULFATE\BUDESONIDE
     Route: 065

REACTIONS (9)
  - Incorrect dose administered [Unknown]
  - Product dose omission issue [Unknown]
  - Overdose [Unknown]
  - Drug ineffective [Unknown]
  - Device use issue [Unknown]
  - Device issue [Unknown]
  - Medication error [Unknown]
  - Drug ineffective [Unknown]
  - Wrong technique in product usage process [Unknown]
